FAERS Safety Report 18954318 (Version 1)
Quarter: 2021Q1

REPORT INFORMATION
  Report Type: Spontaneous
  Country: GB (occurrence: GB)
  Receive Date: 20210301
  Receipt Date: 20210301
  Transmission Date: 20210420
  Serious: Yes (Other)
  Sender: FDA-Public Use
  Company Number: NVSC2021GB045273

PATIENT
  Age: 61 Year
  Sex: Female

DRUGS (3)
  1. DOXAZOSIN [Suspect]
     Active Substance: DOXAZOSIN MESYLATE
     Indication: HYPERTENSION
     Dosage: 4 MG, QD
     Route: 065
  2. LOSARTAN. [Suspect]
     Active Substance: LOSARTAN
     Indication: ENDOMETRIOSIS
     Dosage: UNK
     Route: 065
     Dates: end: 20201224
  3. LOSARTAN. [Suspect]
     Active Substance: LOSARTAN
     Indication: MIGRAINE

REACTIONS (8)
  - Nausea [Recovering/Resolving]
  - Sneezing [Recovering/Resolving]
  - Constipation [Recovering/Resolving]
  - Flatulence [Recovering/Resolving]
  - Dizziness [Recovering/Resolving]
  - Tremor [Recovering/Resolving]
  - Headache [Recovering/Resolving]
  - Tinnitus [Recovering/Resolving]
